FAERS Safety Report 15333281 (Version 2)
Quarter: 2018Q3

REPORT INFORMATION
  Report Type: Spontaneous
  Country: RO (occurrence: RO)
  Receive Date: 20180830
  Receipt Date: 20180904
  Transmission Date: 20181010
  Serious: Yes (Death, Other)
  Sender: FDA-Public Use
  Company Number: RO-ROCHE-2170196

PATIENT
  Sex: Male

DRUGS (2)
  1. ROACTEMRA [Suspect]
     Active Substance: TOCILIZUMAB
     Indication: RHEUMATOID ARTHRITIS
     Route: 065
  2. METHOTREXATE. [Concomitant]
     Active Substance: METHOTREXATE

REACTIONS (5)
  - Conjunctivitis [Unknown]
  - Hunger [Unknown]
  - Pruritus [Unknown]
  - Myocardial infarction [Fatal]
  - Nausea [Unknown]

NARRATIVE: CASE EVENT DATE: 20180828
